FAERS Safety Report 14229205 (Version 1)
Quarter: 2017Q4

REPORT INFORMATION
  Report Type: Report from Study
  Country: None (occurrence: US)
  Receive Date: 20171128
  Receipt Date: 20171128
  Transmission Date: 20180321
  Serious: Yes (Hospitalization)
  Sender: FDA-Public Use
  Company Number: US-ABBVIE-17K-163-2163875-00

PATIENT
  Age: 74 Year
  Sex: Female
  Weight: 32.23 kg

DRUGS (4)
  1. HUMIRA [Suspect]
     Active Substance: ADALIMUMAB
     Indication: CROHN^S DISEASE
     Route: 058
     Dates: start: 20170706, end: 20171016
  2. HUMIRA [Suspect]
     Active Substance: ADALIMUMAB
     Route: 058
     Dates: start: 2017, end: 20171110
  3. ZINC. [Concomitant]
     Active Substance: ZINC
     Indication: MINERAL SUPPLEMENTATION
  4. FOLIC ACID. [Concomitant]
     Active Substance: FOLIC ACID
     Indication: VITAMIN SUPPLEMENTATION

REACTIONS (7)
  - Inflammation [Unknown]
  - Electrolyte imbalance [Recovered/Resolved]
  - Myocardial infarction [Recovering/Resolving]
  - Blood test abnormal [Not Recovered/Not Resolved]
  - Myocardial hypoxia [Unknown]
  - White blood cell count increased [Unknown]
  - Malabsorption [Unknown]

NARRATIVE: CASE EVENT DATE: 2017
